FAERS Safety Report 17537783 (Version 1)
Quarter: 2020Q1

REPORT INFORMATION
  Report Type: Spontaneous
  Country: HR (occurrence: HR)
  Receive Date: 20200313
  Receipt Date: 20200313
  Transmission Date: 20200409
  Serious: Yes (Hospitalization, Other)
  Sender: FDA-Public Use
  Company Number: NVSC2020HR069900

PATIENT
  Sex: Female

DRUGS (1)
  1. GILENYA [Suspect]
     Active Substance: FINGOLIMOD HYDROCHLORIDE
     Indication: MULTIPLE SCLEROSIS
     Dosage: UNK
     Route: 065
     Dates: end: 201909

REACTIONS (15)
  - Vertigo [Unknown]
  - Pericardial effusion [Unknown]
  - Headache [Unknown]
  - Paraparesis [Unknown]
  - Muscular weakness [Unknown]
  - Tremor [Unknown]
  - Gait disturbance [Unknown]
  - Lymphopenia [Unknown]
  - Hemiparesis [Unknown]
  - Monoparesis [Unknown]
  - Nystagmus [Unknown]
  - Quadriparesis [Unknown]
  - Vomiting [Unknown]
  - Multiple sclerosis [Unknown]
  - Feeling abnormal [Unknown]
